FAERS Safety Report 6687296-0 (Version None)
Quarter: 2010Q2

REPORT INFORMATION
  Report Type: 
  Country: None (occurrence: None)
  Receive Date: 20100415
  Receipt Date: 20100401
  Transmission Date: 20101027
  Serious: Yes (Hospitalization)
  Sender: FDA-Public Use
  Company Number: 233018J10USA

PATIENT
  Age: 43 Year
  Sex: Male
  Weight: 74 kg

DRUGS (4)
  1. REBIF [Suspect]
     Indication: RELAPSING-REMITTING MULTIPLE SCLEROSIS
     Dosage: 44 MCG, 1 IN 2 D, SUBCUTANEOUS
     Route: 058
     Dates: start: 20051128, end: 20100101
  2. NALTREXONE HYDROCHLORIDE [Concomitant]
  3. BACLOFEN [Concomitant]
  4. TEGRETOL [Concomitant]

REACTIONS (6)
  - ASTHENIA [None]
  - MULTIPLE SCLEROSIS RELAPSE [None]
  - MUSCLE SPASTICITY [None]
  - PNEUMONIA [None]
  - RELAPSING-REMITTING MULTIPLE SCLEROSIS [None]
  - WALKING AID USER [None]
